FAERS Safety Report 23471983 (Version 1)
Quarter: 2024Q1

REPORT INFORMATION
  Report Type: Spontaneous
  Country: CN (occurrence: CN)
  Receive Date: 20240202
  Receipt Date: 20240202
  Transmission Date: 20240409
  Serious: Yes (Other)
  Sender: FDA-Public Use
  Company Number: CN-ANIPHARMA-2024-CN-000024

PATIENT
  Age: 31 Year
  Sex: Female

DRUGS (1)
  1. CHLORTHALIDONE [Suspect]
     Active Substance: CHLORTHALIDONE
     Indication: Diuretic therapy
     Dosage: UNKNOWN
     Route: 048
     Dates: start: 20210217, end: 20210218

REACTIONS (1)
  - Choroidal effusion [Unknown]

NARRATIVE: CASE EVENT DATE: 20210218
